FAERS Safety Report 8513700-9 (Version None)
Quarter: 2012Q3

REPORT INFORMATION
  Report Type: 
  Country: None (occurrence: None)
  Receive Date: 20120717
  Receipt Date: 20120704
  Transmission Date: 20120928
  Serious: Yes (Death, Hospitalization, Other)
  Sender: FDA-Public Use
  Company Number: TR-RANBAXY-2012RR-57605

PATIENT
  Age: 41 Year
  Sex: Female

DRUGS (1)
  1. AMOXICILLIN [Suspect]
     Indication: TONSILLITIS
     Route: 065

REACTIONS (4)
  - SYSTEMIC INFLAMMATORY RESPONSE SYNDROME [None]
  - PSEUDOMONAL SEPSIS [None]
  - RESPIRATORY DISTRESS [None]
  - TOXIC EPIDERMAL NECROLYSIS [None]
